FAERS Safety Report 4551806-X (Version None)
Quarter: 2005Q1

REPORT INFORMATION
  Report Type: 
  Country: None (occurrence: None)
  Receive Date: 20050111
  Receipt Date: 20041228
  Transmission Date: 20050727
  Serious: No
  Sender: FDA-Public Use
  Company Number: SE-2004-035602

PATIENT
  Age: 32 Year
  Sex: Female

DRUGS (3)
  1. LEVONORGESTREL [Suspect]
     Indication: CONTRACEPTION
     Dosage: 20 UG DAY CONT. INTRAUTERINE
     Route: 015
     Dates: start: 19940101, end: 19950601
  2. LEVONORGESTREL [Suspect]
     Indication: CONTRACEPTION
     Dosage: 20 UG DAY CONT. INTRAUTERINE
     Route: 015
     Dates: start: 19950601, end: 19990101
  3. ZANTAC [Concomitant]

REACTIONS (41)
  - ABDOMINAL DISTENSION [None]
  - ABDOMINAL MASS [None]
  - ABORTION [None]
  - AMENORRHOEA [None]
  - ANXIETY [None]
  - ASTHMA [None]
  - BALANCE DISORDER [None]
  - BLINDNESS TRANSIENT [None]
  - BLOOD PRESSURE ABNORMAL [None]
  - BODY MASS INDEX INCREASED [None]
  - CARPAL TUNNEL SYNDROME [None]
  - DEPERSONALISATION [None]
  - DEPRESSION [None]
  - DIZZINESS [None]
  - DRUG EXPOSURE DURING PREGNANCY [None]
  - DYSPEPSIA [None]
  - FATIGUE [None]
  - GASTRIC DISORDER [None]
  - HEADACHE [None]
  - HYPOAESTHESIA [None]
  - INTERVERTEBRAL DISC DISORDER [None]
  - IRRITABLE BOWEL SYNDROME [None]
  - MENSTRUAL DISORDER [None]
  - MENTAL IMPAIRMENT [None]
  - MIGRAINE [None]
  - MYOSITIS [None]
  - NAUSEA [None]
  - OEDEMA PERIPHERAL [None]
  - OVERWEIGHT [None]
  - PAIN [None]
  - PAIN IN EXTREMITY [None]
  - PALPITATIONS [None]
  - PREGNANCY [None]
  - PREGNANCY WITH CONTRACEPTIVE DEVICE [None]
  - PSYCHOSOMATIC DISEASE [None]
  - SPINAL OSTEOARTHRITIS [None]
  - UPPER RESPIRATORY TRACT INFECTION [None]
  - VISION BLURRED [None]
  - VISUAL DISTURBANCE [None]
  - WEIGHT INCREASED [None]
  - WEIGHT LOSS POOR [None]
